FAERS Safety Report 18013664 (Version 3)
Quarter: 2020Q4

REPORT INFORMATION
  Report Type: Spontaneous
  Country: CO (occurrence: CO)
  Receive Date: 20200713
  Receipt Date: 20201019
  Transmission Date: 20210113
  Serious: Yes (Other)
  Sender: FDA-Public Use
  Company Number: CO-PFIZER INC-2020266168

PATIENT
  Sex: Female

DRUGS (2)
  1. REAMPLA [Suspect]
     Active Substance: PALBOCICLIB
     Indication: BREAST CANCER METASTATIC
     Dosage: 125 MG, CYCLIC (21 DAYS, REST FOR 7 DAYS)
     Route: 048
     Dates: start: 2019, end: 202005
  2. REAMPLA [Suspect]
     Active Substance: PALBOCICLIB
     Dosage: 125 MG, CYCLIC (21 DAYS, REST FOR 7 DAYS)
     Route: 048
     Dates: start: 202007

REACTIONS (3)
  - Mouth injury [Unknown]
  - Illness [Unknown]
  - Vulvovaginal injury [Unknown]

NARRATIVE: CASE EVENT DATE: 2020
